FAERS Safety Report 11219964 (Version 1)
Quarter: 2015Q2

REPORT INFORMATION
  Report Type: Spontaneous
  Country: MV (occurrence: None)
  Receive Date: 20150624
  Receipt Date: 20150624
  Transmission Date: 20150821
  Serious: Yes (Other)
  Sender: FDA-Public Use
  Company Number: None

PATIENT
  Age: 77 Year
  Sex: Female
  Weight: 128 kg

DRUGS (14)
  1. LIPITOR [Concomitant]
     Active Substance: ATORVASTATIN CALCIUM
  2. OMEPRAZOLE. [Concomitant]
     Active Substance: OMEPRAZOLE
  3. D3 [Concomitant]
     Active Substance: 25-HYDROXYCHOLECALCIFEROL, 5-TRANS-
  4. FORIDAL [Concomitant]
  5. NITRASTAT [Concomitant]
  6. METOPROLOL [Concomitant]
     Active Substance: METOPROLOL
  7. FISH OIL [Concomitant]
     Active Substance: FISH OIL
  8. MAGNESIUM CITRATE (SALINE LAXATIVE ORAL SOLUTION) [Suspect]
     Active Substance: MAGNESIUM CITRATE
     Indication: CONSTIPATION
     Dosage: 282MG-SODIUM- 37 MG, 1/2 BOTTLE TO (10-OZ) 8 OZ WATER, SINGLE DAILY DOSE OR-IN DIVIDED DOSES, BY MOUTH MIXED WITH WATER 1/2 5 OZ BOTTLE 8 OZ WATER
     Route: 048
     Dates: start: 20150319, end: 20150320
  9. ASPIRIN. [Concomitant]
     Active Substance: ASPIRIN
  10. IBUPROFEN. [Concomitant]
     Active Substance: IBUPROFEN
  11. VENTOLIN [Concomitant]
     Active Substance: ALBUTEROL SULFATE
  12. CALTRATE [Concomitant]
     Active Substance: CALCIUM CARBONATE
  13. SPIRVIA [Concomitant]
  14. OXYGEN. [Concomitant]
     Active Substance: OXYGEN

REACTIONS (2)
  - Abdominal pain [None]
  - Neck pain [None]

NARRATIVE: CASE EVENT DATE: 20150320
